FAERS Safety Report 16988589 (Version 1)
Quarter: 2019Q4

REPORT INFORMATION
  Report Type: Spontaneous
  Country: US (occurrence: US)
  Receive Date: 20191104
  Receipt Date: 20191104
  Transmission Date: 20200122
  Serious: No
  Sender: FDA-Public Use
  Company Number: US-APOTEX-2019AP007963

PATIENT
  Sex: Female

DRUGS (1)
  1. FLUTICASONE. [Suspect]
     Active Substance: FLUTICASONE
     Indication: SINUSITIS
     Dosage: UNK (DAILY)
     Route: 045
     Dates: start: 2018

REACTIONS (7)
  - Nasal inflammation [Not Recovered/Not Resolved]
  - Nasal crusting [Not Recovered/Not Resolved]
  - Recalled product administered [Unknown]
  - Nasal discomfort [Not Recovered/Not Resolved]
  - Nasal injury [Not Recovered/Not Resolved]
  - Rhinorrhoea [Not Recovered/Not Resolved]
  - Drug ineffective [Unknown]
